FAERS Safety Report 19889405 (Version 3)
Quarter: 2022Q1

REPORT INFORMATION
  Report Type: Spontaneous
  Country: JP (occurrence: JP)
  Receive Date: 20210928
  Receipt Date: 20220308
  Transmission Date: 20220423
  Serious: Yes (Death)
  Sender: FDA-Public Use
  Company Number: JP-BAUSCH-BL-2021-032562

PATIENT
  Age: 9 Decade
  Sex: Male

DRUGS (1)
  1. MOVIPREP [Suspect]
     Active Substance: ASCORBIC ACID\POLYETHYLENE GLYCOL 3350\POTASSIUM CHLORIDE\SODIUM ASCORBATE\SODIUM CHLORIDE\SODIUM SU
     Indication: Product used for unknown indication
     Route: 048
     Dates: start: 20210913

REACTIONS (3)
  - Mechanical ileus [Fatal]
  - Septic shock [Fatal]
  - Medication error [Unknown]

NARRATIVE: CASE EVENT DATE: 20210913
